FAERS Safety Report 23182095 (Version 1)
Quarter: 2023Q4

REPORT INFORMATION
  Report Type: Spontaneous
  Country: PR (occurrence: PR)
  Receive Date: 20231114
  Receipt Date: 20231114
  Transmission Date: 20240110
  Serious: No
  Sender: FDA-Public Use
  Company Number: PR-PURDUE PHARMA-USA-2023-0304097

PATIENT
  Age: 59 Year
  Sex: Female
  Weight: 51.701 kg

DRUGS (1)
  1. MORPHINE SULFATE [Suspect]
     Active Substance: MORPHINE SULFATE
     Indication: Pain
     Dosage: UNKNOWN
     Route: 048

REACTIONS (1)
  - Constipation [Not Recovered/Not Resolved]
